FAERS Safety Report 24881938 (Version 1)
Quarter: 2025Q1

REPORT INFORMATION
  Report Type: Spontaneous
  Country: MT (occurrence: MT)
  Receive Date: 20250124
  Receipt Date: 20250124
  Transmission Date: 20250408
  Serious: Yes (Other)
  Sender: STRIDES
  Company Number: MT-STRIDES ARCOLAB LIMITED-2025SP001095

PATIENT
  Age: 59 Year
  Sex: Female

DRUGS (4)
  1. LEVETIRACETAM [Suspect]
     Active Substance: LEVETIRACETAM
     Indication: Seizure
     Route: 065
  2. LEVETIRACETAM [Suspect]
     Active Substance: LEVETIRACETAM
     Route: 065
  3. AMANTADINE [Suspect]
     Active Substance: AMANTADINE
     Indication: Progressive multiple sclerosis
     Route: 065
  4. AMANTADINE [Suspect]
     Active Substance: AMANTADINE
     Route: 065

REACTIONS (2)
  - Corneal oedema [Recovered/Resolved]
  - Off label use [Unknown]
